FAERS Safety Report 9278367 (Version 2)
Quarter: 2013Q2

REPORT INFORMATION
  Report Type: Spontaneous
  Country: US (occurrence: US)
  Receive Date: 20130508
  Receipt Date: 20130513
  Transmission Date: 20140414
  Serious: Yes (Hospitalization)
  Sender: FDA-Public Use
  Company Number: US-PFIZER INC-2013140093

PATIENT
  Age: 82 Year
  Sex: Female
  Weight: 79.5 kg

DRUGS (6)
  1. AMIODARONE HCL [Suspect]
     Dosage: UNK
     Route: 065
  2. DABIGATRAN [Interacting]
     Indication: ATRIAL FIBRILLATION
     Dosage: 150 MG, 2X/DAY
     Route: 065
  3. WARFARIN [Concomitant]
     Indication: ATRIAL FIBRILLATION
     Dosage: UNK
  4. CARVEDILOL [Concomitant]
     Dosage: UNK
  5. SIMVASTATIN [Concomitant]
     Dosage: UNK
  6. FUROSEMIDE [Concomitant]
     Dosage: UNK

REACTIONS (3)
  - Drug interaction [Unknown]
  - Overdose [Recovered/Resolved]
  - Coagulopathy [Recovered/Resolved]
